FAERS Safety Report 20363651 (Version 1)
Quarter: 2022Q1

REPORT INFORMATION
  Report Type: Spontaneous
  Country: US (occurrence: None)
  Receive Date: 20220121
  Receipt Date: 20220121
  Transmission Date: 20220423
  Serious: Yes (Other)
  Sender: FDA-Public Use
  Company Number: None

PATIENT
  Age: 73 Year
  Weight: 85.5 kg

DRUGS (10)
  1. ATOVAQUONE [Suspect]
     Active Substance: ATOVAQUONE
     Indication: Chronic lymphocytic leukaemia
     Dosage: OTHER QUANTITY : 10 10 ML PER MORNING;?
     Route: 048
     Dates: start: 20210401, end: 20220119
  2. ACYCLOVIR [Suspect]
     Active Substance: ACYCLOVIR
  3. ALLOPURINOL [Concomitant]
     Active Substance: ALLOPURINOL
  4. EZETIMIBE [Concomitant]
     Active Substance: EZETIMIBE
  5. LEVOTHYROXINE [Concomitant]
     Active Substance: LEVOTHYROXINE
  6. METOPROLOL SUCCINATE [Concomitant]
     Active Substance: METOPROLOL SUCCINATE
  7. CALCIUM CARBONATE [Concomitant]
     Active Substance: CALCIUM CARBONATE
  8. VITAMIN D3 [Concomitant]
     Active Substance: CHOLECALCIFEROL
  9. VITAMINS [Concomitant]
     Active Substance: VITAMINS
  10. ASPIRIN [Concomitant]
     Active Substance: ASPIRIN

REACTIONS (1)
  - Glossodynia [None]

NARRATIVE: CASE EVENT DATE: 20220110
